FAERS Safety Report 21110581 (Version 1)
Quarter: 2022Q3

REPORT INFORMATION
  Report Type: Spontaneous
  Country: US (occurrence: None)
  Receive Date: 20220720
  Receipt Date: 20220720
  Transmission Date: 20221026
  Serious: Yes (Other)
  Sender: FDA-Public Use
  Company Number: None

PATIENT
  Age: 57 Year
  Sex: Male

DRUGS (16)
  1. OTEZLA [Suspect]
     Active Substance: APREMILAST
     Indication: Psoriasis
     Dosage: 30MG TAB BID PO?
     Route: 048
     Dates: start: 20190830, end: 20220503
  2. COSENTYX [Concomitant]
     Active Substance: SECUKINUMAB
  3. LIPITOR [Concomitant]
     Active Substance: ATORVASTATIN CALCIUM
  4. PLAVIX [Concomitant]
     Active Substance: CLOPIDOGREL BISULFATE
  5. NIASPAN [Concomitant]
     Active Substance: NIACIN
  6. CLINDAMYCIN [Concomitant]
     Active Substance: CLINDAMYCIN
  7. PRALUENT [Concomitant]
     Active Substance: ALIROCUMAB
  8. HALOBETASOL PROPIONATE [Concomitant]
     Active Substance: HALOBETASOL PROPIONATE
  9. DESONIDE [Concomitant]
     Active Substance: DESONIDE
  10. DIAZEPAM [Concomitant]
     Active Substance: DIAZEPAM
  11. ZOLPIDEM [Concomitant]
     Active Substance: ZOLPIDEM TARTRATE
  12. clotrimatrole-betamethasone [Concomitant]
  13. LOPRESSOR [Concomitant]
     Active Substance: METOPROLOL TARTRATE
  14. ZETIA [Concomitant]
     Active Substance: EZETIMIBE
  15. JARDIANCE [Concomitant]
     Active Substance: EMPAGLIFLOZIN
  16. NITROGLYCERIN [Concomitant]
     Active Substance: NITROGLYCERIN

REACTIONS (1)
  - Drug ineffective [None]

NARRATIVE: CASE EVENT DATE: 20220720
